FAERS Safety Report 5729199-1 (Version None)
Quarter: 2008Q2

REPORT INFORMATION
  Report Type: 
  Country: None (occurrence: None)
  Receive Date: 20080506
  Receipt Date: 20080430
  Transmission Date: 20081010
  Serious: Yes (Other)
  Sender: FDA-Public Use
  Company Number: CH-PFIZER INC-2008037436

PATIENT
  Age: 53 Year
  Sex: Male

DRUGS (1)
  1. CHANTIX [Suspect]
     Route: 048
     Dates: start: 20071210, end: 20080120

REACTIONS (3)
  - AGGRESSION [None]
  - DEPRESSION SUICIDAL [None]
  - MOOD SWINGS [None]
